FAERS Safety Report 9039493 (Version 1)
Quarter: 2013Q1

REPORT INFORMATION
  Report Type: Spontaneous
  Country: US (occurrence: None)
  Receive Date: 20130123
  Receipt Date: 20130123
  Transmission Date: 20140127
  Serious: No
  Sender: FDA-Public Use
  Company Number: None

PATIENT
  Sex: Female

DRUGS (1)
  1. AMPYRA [Suspect]
     Dosage: 10MG Q12HOURS PO
     Route: 048

REACTIONS (2)
  - Burning feet syndrome [None]
  - Insomnia [None]
